FAERS Safety Report 17951267 (Version 1)
Quarter: 2020Q2

REPORT INFORMATION
  Report Type: Spontaneous
  Country: DE (occurrence: DE)
  Receive Date: 20200626
  Receipt Date: 20200626
  Transmission Date: 20200714
  Serious: Yes (Other)
  Sender: FDA-Public Use
  Company Number: NVSC2020DE179890

PATIENT
  Sex: Female
  Weight: 130 kg

DRUGS (1)
  1. METOHEXAL SUCC 47,5 MG RETARDTABLETTEN [Suspect]
     Active Substance: METOPROLOL SUCCINATE
     Indication: PRODUCT USED FOR UNKNOWN INDICATION
     Dosage: 1 DF, QD
     Route: 065
     Dates: start: 20190320

REACTIONS (4)
  - Extrasystoles [Unknown]
  - Dizziness [Unknown]
  - Alopecia [Unknown]
  - Syncope [Unknown]

NARRATIVE: CASE EVENT DATE: 2020
